FAERS Safety Report 23253088 (Version 1)
Quarter: 2023Q4

REPORT INFORMATION
  Report Type: Other
  Country: JP (occurrence: JP)
  Receive Date: 20231201
  Receipt Date: 20231201
  Transmission Date: 20240110
  Serious: Yes (Other)
  Sender: FDA-Public Use
  Company Number: JP-CHUGAI-2023042764AA

PATIENT
  Age: 82 Year
  Sex: Male

DRUGS (5)
  1. TECENTRIQ [Suspect]
     Active Substance: ATEZOLIZUMAB
     Indication: Hepatocellular carcinoma
     Route: 065
  2. AVASTIN [Suspect]
     Active Substance: BEVACIZUMAB
     Indication: Hepatocellular carcinoma
     Route: 042
  3. DURVALUMAB [Concomitant]
     Active Substance: DURVALUMAB
  4. TREMELIMUMAB [Concomitant]
     Active Substance: TREMELIMUMAB
  5. RAMUCIRUMAB [Concomitant]
     Active Substance: RAMUCIRUMAB

REACTIONS (3)
  - Metastases to adrenals [Unknown]
  - Proteinuria [Unknown]
  - Disease progression [Unknown]
